FAERS Safety Report 9744619 (Version 2)
Quarter: 2014Q1

REPORT INFORMATION
  Report Type: Spontaneous
  Country: JP (occurrence: JP)
  Receive Date: 20131210
  Receipt Date: 20140101
  Transmission Date: 20141002
  Serious: Yes (Hospitalization, Other)
  Sender: FDA-Public Use
  Company Number: JP-ASTRAZENECA-2013SE89173

PATIENT
  Age: 73 Year
  Sex: Male

DRUGS (9)
  1. CRESTOR [Suspect]
     Indication: HYPERCHOLESTEROLAEMIA
     Route: 048
     Dates: start: 20121101, end: 20131127
  2. ACTOS [Suspect]
     Route: 048
  3. SEIBULE [Suspect]
     Route: 048
  4. VASOLAN [Suspect]
     Route: 048
     Dates: end: 20131127
  5. OPALMON [Suspect]
     Route: 048
  6. LORCAM [Suspect]
     Route: 048
     Dates: end: 20131127
  7. EPADEL [Suspect]
     Route: 048
  8. AMARYL [Suspect]
     Route: 048
  9. PLETAAL [Concomitant]
     Route: 048

REACTIONS (2)
  - Stress cardiomyopathy [Unknown]
  - Rhabdomyolysis [Recovered/Resolved]
